FAERS Safety Report 4849321-9 (Version None)
Quarter: 2005Q4

REPORT INFORMATION
  Report Type: 
  Country: None (occurrence: None)
  Receive Date: 20051207
  Receipt Date: 20051121
  Transmission Date: 20060501
  Serious: Yes (Life-Threatening, Hospitalization)
  Sender: FDA-Public Use
  Company Number: 2005-BP-20513RO

PATIENT
  Age: 67 Year
  Sex: Female

DRUGS (15)
  1. LEUCOVORIN CALCIUM [Suspect]
     Indication: INTESTINAL ADENOCARCINOMA
     Dosage: 354 MG PER CYCLE
     Dates: start: 20050926
  2. ALBUTEROL [Suspect]
     Indication: HYPERSENSITIVITY
     Dosage: IH
     Route: 055
     Dates: start: 20051010
  3. OXALIPLATIN (OXALIPLATIN) [Suspect]
     Indication: INTESTINAL ADENOCARCINOMA
     Dosage: 177 MG PER CYCLE
     Dates: start: 20050926, end: 20051010
  4. FLUOROURACIL [Suspect]
     Indication: INTESTINAL ADENOCARCINOMA
     Dosage: 708 MG PER CYCLE
     Dates: start: 20050926
  5. SOLU-MEDROL [Suspect]
     Indication: HYPERSENSITIVITY
     Dosage: IV
     Route: 042
     Dates: start: 20051010
  6. BENADRYL [Suspect]
     Indication: HYPERSENSITIVITY
     Dosage: IV
     Route: 042
     Dates: start: 20051010
  7. EPINEPHRINE [Suspect]
     Indication: HYPERSENSITIVITY
     Dates: start: 20051010
  8. DECADRON [Concomitant]
  9. ALOXI [Concomitant]
  10. ASPIRIN [Concomitant]
  11. AMBIEN [Concomitant]
  12. TOPROL-XL [Concomitant]
  13. XANAX [Concomitant]
  14. ZOLOFT [Concomitant]
  15. IRON SUPPLEMENT (IRON) [Concomitant]

REACTIONS (3)
  - HYPERSENSITIVITY [None]
  - MUSCLE SPASMS [None]
  - THERAPY NON-RESPONDER [None]
